FAERS Safety Report 4587713-6 (Version None)
Quarter: 2005Q1

REPORT INFORMATION
  Report Type: 
  Country: None (occurrence: None)
  Receive Date: 20050125
  Receipt Date: 20041118
  Transmission Date: 20050727
  Serious: No
  Sender: FDA-Public Use
  Company Number: USA030535887

PATIENT
  Age: 78 Year
  Sex: Female
  Weight: 67 kg

DRUGS (3)
  1. FORTEO [Suspect]
     Indication: OSTEOPOROSIS
     Dates: start: 20030301
  2. CALCIUM GLUCONATE [Concomitant]
  3. VITAMINS [Concomitant]

REACTIONS (11)
  - ASTHENIA [None]
  - CHANGE OF BOWEL HABIT [None]
  - CONSTIPATION [None]
  - DIARRHOEA [None]
  - FEELING ABNORMAL [None]
  - FLATULENCE [None]
  - FREQUENT BOWEL MOVEMENTS [None]
  - GASTRIC DISORDER [None]
  - GASTROINTESTINAL MOTILITY DISORDER [None]
  - MICTURITION DISORDER [None]
  - SENSORY DISTURBANCE [None]
